FAERS Safety Report 5491323-6 (Version None)
Quarter: 2007Q4

REPORT INFORMATION
  Report Type: 
  Country: None (occurrence: None)
  Receive Date: 20071019
  Receipt Date: 20070928
  Transmission Date: 20080405
  Serious: No
  Sender: FDA-Public Use
  Company Number: US-BOEHRINGER INGELHEIM PHARMACEUTICALS, INC.-2006-BP-10312BP

PATIENT
  Sex: Male

DRUGS (25)
  1. MIRAPEX [Suspect]
     Indication: PARKINSON'S DISEASE
     Route: 048
     Dates: start: 20011101, end: 20040601
  2. SINEMET [Concomitant]
  3. ARTANE [Concomitant]
  4. ELDEPRYL [Concomitant]
  5. ASPIRIN [Concomitant]
  6. MULTI-VITAMIN [Concomitant]
  7. ASCORBIC ACID [Concomitant]
  8. VITAMIN E [Concomitant]
  9. VITAMIN B [Concomitant]
  10. DIOVAN [Concomitant]
  11. MICROZIDE [Concomitant]
     Dates: start: 20020401
  12. KEMADRIN [Concomitant]
     Route: 048
  13. VIAGRA [Concomitant]
  14. COMTAN [Concomitant]
     Dates: start: 20030501
  15. STALEVO 100 [Concomitant]
     Dates: start: 20040101
  16. FLOMAX [Concomitant]
     Route: 048
  17. PRIMIDONE [Concomitant]
     Dates: start: 20050101
  18. MYSOLINE [Concomitant]
     Dates: start: 20051001
  19. REQUIP [Concomitant]
  20. AVAPRO [Concomitant]
     Dates: start: 20020521
  21. WELLBUTRIN XL [Concomitant]
     Dates: start: 20040621
  22. PENICILLIN VK [Concomitant]
     Dates: start: 20040928
  23. NULYTELY FLAV PAK [Concomitant]
     Dates: start: 20041006
  24. DIOVAN HCT [Concomitant]
     Dates: start: 20041013
  25. TOPROL-XL [Concomitant]
     Dates: start: 20070104

REACTIONS (2)
  - OBSESSIVE-COMPULSIVE DISORDER [None]
  - PATHOLOGICAL GAMBLING [None]
